FAERS Safety Report 9434573 (Version 1)
Quarter: 2013Q3

REPORT INFORMATION
  Report Type: Spontaneous
  Country: BR (occurrence: None)
  Receive Date: 20130729
  Receipt Date: 20130729
  Transmission Date: 20140515
  Serious: Yes (Other)
  Sender: FDA-Public Use
  Company Number: VAL_02655_2013

PATIENT
  Age: 22 Year
  Sex: Female

DRUGS (1)
  1. METHERGINE [Suspect]
     Indication: PRODUCT USED FOR UNKNOWN INDICATION
     Dosage: ONCE/SINGLE (IN MORNING)
     Dates: start: 20120521, end: 20120521

REACTIONS (2)
  - Self-medication [None]
  - Maternal exposure during pregnancy [None]
